FAERS Safety Report 16012199 (Version 4)
Quarter: 2020Q4

REPORT INFORMATION
  Report Type: Spontaneous
  Country: US (occurrence: US)
  Receive Date: 20190227
  Receipt Date: 20201001
  Transmission Date: 20210113
  Serious: Yes (Other)
  Sender: FDA-Public Use
  Company Number: US-GLAXOSMITHKLINE-US2019GSK035273

PATIENT
  Age: 53 Year
  Sex: Female

DRUGS (2)
  1. PREVACID [Suspect]
     Active Substance: LANSOPRAZOLE
     Indication: PRODUCT USED FOR UNKNOWN INDICATION
     Dosage: UNK
     Route: 065
  2. PREVACID 24 HR [Suspect]
     Active Substance: LANSOPRAZOLE
     Indication: PRODUCT USED FOR UNKNOWN INDICATION
     Dosage: UNKNOWN, UNKNOWN
     Route: 048

REACTIONS (7)
  - Renal failure [Unknown]
  - Hyperchlorhydria [Unknown]
  - Acute kidney injury [Unknown]
  - Nephropathy [Unknown]
  - Renal impairment [Unknown]
  - Rebound effect [Unknown]
  - Renal injury [Unknown]

NARRATIVE: CASE EVENT DATE: 20161116
